FAERS Safety Report 8919497 (Version 1)
Quarter: 2012Q4

REPORT INFORMATION
  Report Type: Spontaneous
  Country: DK (occurrence: None)
  Receive Date: 20121114
  Receipt Date: 20121114
  Transmission Date: 20130627
  Serious: Yes (Hospitalization, Other)
  Sender: FDA-Public Use
  Company Number: 2012MA013323

PATIENT
  Age: 29 Year
  Sex: Female

DRUGS (3)
  1. MIRTAZAPINE TABLETS [Suspect]
     Indication: INTENTIONAL SELF-INJURY
     Dates: start: 20120904, end: 20120904
  2. DEPAKIN [Suspect]
     Indication: INTENTIONAL SELF-INJURY
     Route: 048
     Dates: start: 20120904, end: 20120904
  3. XANAX [Suspect]
     Indication: INTENTIONAL SELF-INJURY
     Route: 048
     Dates: start: 20120904, end: 20120904

REACTIONS (4)
  - Sopor [None]
  - Overdose [None]
  - Suicide attempt [None]
  - Drug screen positive [None]
